FAERS Safety Report 5896032-7 (Version None)
Quarter: 2008Q3

REPORT INFORMATION
  Report Type: 
  Country: None (occurrence: None)
  Receive Date: 20080924
  Receipt Date: 20080920
  Transmission Date: 20090109
  Serious: Yes (Hospitalization, Other)
  Sender: FDA-Public Use
  Company Number: US-BRISTOL-MYERS SQUIBB COMPANY-14342562

PATIENT
  Age: 39 Year
  Sex: Male
  Weight: 81 kg

DRUGS (4)
  1. ERBITUX [Suspect]
     Indication: COLON CANCER STAGE III
     Route: 042
     Dates: start: 20080811, end: 20080811
  2. FLUOROURACIL [Suspect]
     Indication: COLON CANCER STAGE III
     Dosage: INITIATED ON 05-MAY-08,COURSE ASSOCIATED WITH 11-AUG-08.
     Route: 042
     Dates: start: 20080811, end: 20080811
  3. LEUCOVORIN CALCIUM [Suspect]
     Indication: COLON CANCER STAGE III
     Dosage: INITIATED ON 05-MAY-08,COURSE ASSOCIATED WITH 11-AUG-08.
     Route: 042
     Dates: start: 20080811, end: 20080811
  4. OXALIPLATIN [Suspect]
     Indication: COLON CANCER STAGE III
     Dosage: INITIATED ON 05-MAY-08,COURSE ASSOCIATED WITH 11-AUG-08.
     Route: 042
     Dates: start: 20080811, end: 20080811

REACTIONS (5)
  - DIARRHOEA [None]
  - HYPERLIPIDAEMIA [None]
  - NAUSEA [None]
  - THROMBOCYTOPENIA [None]
  - VOMITING [None]
